FAERS Safety Report 4538071-4 (Version None)
Quarter: 2004Q4

REPORT INFORMATION
  Report Type: 
  Country: None (occurrence: None)
  Receive Date: 20041222
  Receipt Date: 20041122
  Transmission Date: 20050328
  Serious: Yes (Hospitalization)
  Sender: FDA-Public Use
  Company Number: GXKR2004US00471

PATIENT
  Age: 12 Year
  Sex: Male

DRUGS (1)
  1. AMOXICILLIN [Suspect]
     Indication: UPPER RESPIRATORY TRACT INFECTION

REACTIONS (9)
  - HYPERTENSION [None]
  - LUPUS NEPHRITIS [None]
  - NEPHROTIC SYNDROME [None]
  - PERIORBITAL OEDEMA [None]
  - PITTING OEDEMA [None]
  - RENAL FAILURE ACUTE [None]
  - SCROTAL OEDEMA [None]
  - SYSTEMIC LUPUS ERYTHEMATOSUS [None]
  - TYMPANIC MEMBRANE DISORDER [None]
